FAERS Safety Report 4774151-6 (Version None)
Quarter: 2005Q3

REPORT INFORMATION
  Report Type: 
  Country: None (occurrence: None)
  Receive Date: 20050921
  Receipt Date: 20050912
  Transmission Date: 20060218
  Serious: Yes (Hospitalization)
  Sender: FDA-Public Use
  Company Number: US-SOLVAY-00205002905

PATIENT
  Sex: Female
  Weight: 55.5 kg

DRUGS (8)
  1. DIGOXIN [Concomitant]
     Indication: CARDIAC DISORDER
     Dosage: DAILY DOSE: .125 MILLIGRAM(S)
     Route: 048
     Dates: start: 20030101
  2. CREON [Suspect]
     Indication: PANCREATIC INSUFFICIENCY
     Dosage: DAILY DOSE: 400 MILLIGRAM(S)
     Route: 048
     Dates: start: 20020101
  3. CREON [Suspect]
     Dosage: DAILY DOSE: 5 MILLIGRAM(S)
     Route: 048
     Dates: start: 20020101
  4. VERAPAMIL - SLOW RELEASE [Concomitant]
     Indication: ATRIAL FIBRILLATION
     Dosage: DAILY DOSE: 240 MILLIGRAM(S)
     Route: 048
     Dates: start: 20010101
  5. COUMADIN [Concomitant]
     Indication: ATRIAL FIBRILLATION
     Dosage: DAILY DOSE:  UNKNOWN
     Route: 048
     Dates: start: 20010101
  6. XANAX [Concomitant]
     Indication: INSOMNIA
     Dosage: DAILY DOSE: .25 MILLIGRAM(S)
     Route: 048
     Dates: start: 19970101
  7. DIDRONEL [Concomitant]
     Indication: OSTEOPENIA
     Dosage: DAILY DOSE:  UNKNOWN
     Route: 048
     Dates: start: 19930101
  8. CALCIUM CITRATE [Concomitant]
     Indication: OSTEOPENIA
     Dosage: DAILY DOSE:  UNKNOWN
     Route: 048
     Dates: start: 19930101

REACTIONS (4)
  - ABDOMINAL PAIN [None]
  - KNEE ARTHROPLASTY [None]
  - PANCREATITIS ACUTE [None]
  - UMBILICAL HERNIA REPAIR [None]
